FAERS Safety Report 25961499 (Version 1)
Quarter: 2025Q4

REPORT INFORMATION
  Report Type: Spontaneous
  Country: CN (occurrence: CN)
  Receive Date: 20251027
  Receipt Date: 20251027
  Transmission Date: 20260117
  Serious: Yes (Hospitalization)
  Sender: ACCORD
  Company Number: None

PATIENT
  Age: 52 Year
  Sex: Female
  Weight: 59 kg

DRUGS (11)
  1. ETOPOSIDE [Suspect]
     Active Substance: ETOPOSIDE
     Indication: Small cell lung cancer
     Dosage: 0.16 GRAM, Q3W
     Route: 042
     Dates: start: 20250607, end: 20250607
  2. CARBOPLATIN [Suspect]
     Active Substance: CARBOPLATIN
     Indication: Small cell lung cancer
     Dosage: 500 MILLIGRAM, Q3W, IV DRIP
     Route: 042
     Dates: start: 20250607, end: 20250607
  3. SERPLULIMAB [Suspect]
     Active Substance: SERPLULIMAB
     Indication: Small cell lung cancer
     Dosage: 300 MILLIGRAM, Q3W, STRENGTH: 10 MILLIGRAM PER MILLILITRE
     Route: 042
     Dates: start: 20250606, end: 20250606
  4. CARBOPLATIN [Suspect]
     Active Substance: CARBOPLATIN
     Indication: Small cell lung cancer
     Dosage: 500 MILLIGRAM, Q3W; IV DRIP
     Route: 042
     Dates: start: 20250726, end: 20250726
  5. ETOPOSIDE [Suspect]
     Active Substance: ETOPOSIDE
     Indication: Small cell lung cancer
     Dosage: 0.16 GRAM, Q3W; IV DRIP
     Route: 042
     Dates: start: 20250726, end: 20250726
  6. SERPLULIMAB [Suspect]
     Active Substance: SERPLULIMAB
     Indication: Small cell lung cancer
     Dosage: 300 MILLIGRAM, Q3W, STRENGTH: 10 MILLIGRAM PER MILLILITRE, IV DRIP
     Route: 042
     Dates: start: 20250701, end: 20250701
  7. SERPLULIMAB [Suspect]
     Active Substance: SERPLULIMAB
     Indication: Small cell lung cancer
     Dosage: 300 MILLIGRAM, Q3W, STRENGTH: 10 MILLIGRAM PER MILLILITRE, IV DRIP
     Route: 042
     Dates: start: 20250725, end: 20250725
  8. ETOPOSIDE [Suspect]
     Active Substance: ETOPOSIDE
     Indication: Small cell lung cancer
     Dosage: 0.16 GRAM, Q3W, IV DRIP
     Route: 042
     Dates: start: 20250702, end: 20250702
  9. ETOPOSIDE [Suspect]
     Active Substance: ETOPOSIDE
     Indication: Small cell lung cancer
     Dosage: 0.15 GRAM, Q3W, IV DRIP
     Route: 042
     Dates: start: 20250901, end: 20250901
  10. CARBOPLATIN [Suspect]
     Active Substance: CARBOPLATIN
     Indication: Small cell lung cancer
     Dosage: 500 MILLIGRAM, Q3W, IV DRIP
     Route: 042
     Dates: start: 20250702, end: 20250702
  11. CARBOPLATIN [Suspect]
     Active Substance: CARBOPLATIN
     Indication: Small cell lung cancer
     Dosage: 450 MILLIGRAM, Q3W, IV DRIP
     Route: 042
     Dates: start: 20250901, end: 20250901

REACTIONS (1)
  - Hepatic function abnormal [Recovering/Resolving]

NARRATIVE: CASE EVENT DATE: 20250826
